FAERS Safety Report 8229335-1 (Version None)
Quarter: 2012Q1

REPORT INFORMATION
  Report Type: 
  Country: None (occurrence: None)
  Receive Date: 20120322
  Receipt Date: 20120315
  Transmission Date: 20120608
  Serious: Yes (Hospitalization)
  Sender: FDA-Public Use
  Company Number: US-UCBSA-005163

PATIENT
  Age: 55 Year
  Sex: Female
  Weight: 126.1 kg

DRUGS (15)
  1. BALSALAZIDE DISODIUM [Concomitant]
     Indication: CROHN'S DISEASE
     Dates: start: 20090311
  2. LANTUS [Concomitant]
     Indication: DIABETES MELLITUS
     Dosage: DAILY DOSE: 50 U
     Route: 058
     Dates: start: 20060701
  3. LOTREL [Concomitant]
     Indication: HYPERTENSION
     Dosage: 5/20 MG
     Route: 048
     Dates: start: 20010901
  4. ZOLOFT [Concomitant]
     Indication: DEPRESSION
     Route: 048
     Dates: start: 20050901
  5. JANUVIA [Concomitant]
     Indication: DIABETES MELLITUS
     Route: 048
     Dates: start: 20080401
  6. LEVOTHYROXINE SODIUM [Concomitant]
     Indication: HYPOTHYROIDISM
     Route: 048
     Dates: start: 20070901
  7. AUGMENTIN '125' [Concomitant]
     Indication: DERMAL CYST
     Dosage: 500/125 MB
     Route: 048
     Dates: start: 20100118, end: 20100130
  8. MERCAPTOPURINE [Concomitant]
     Indication: CROHN'S DISEASE
     Dates: start: 20090311
  9. CIPROFLOXACIN HYDROCHLORIDE [Concomitant]
     Indication: CROHN'S DISEASE
     Dates: start: 20090908
  10. CALCIUM CARBONATE [Concomitant]
     Indication: CROHN'S DISEASE
  11. FOLIC ACID [Concomitant]
     Indication: FOLATE DEFICIENCY
     Route: 048
     Dates: start: 20091101, end: 20100305
  12. IBUPROFEN [Concomitant]
     Indication: CROHN'S DISEASE
  13. NOVOLIN 70/30 [Concomitant]
     Indication: DIABETES MELLITUS
     Dosage: 25 U
     Route: 058
     Dates: start: 20060701
  14. CIMZIA [Suspect]
     Indication: CROHN'S DISEASE
     Route: 058
     Dates: start: 20091109
  15. LOVASTATIN [Concomitant]
     Indication: HYPERLIPIDAEMIA
     Route: 048
     Dates: start: 20070901

REACTIONS (1)
  - GROIN ABSCESS [None]
